FAERS Safety Report 21811786 (Version 1)
Quarter: 2023Q1

REPORT INFORMATION
  Report Type: Spontaneous
  Country: US (occurrence: None)
  Receive Date: 20230102
  Receipt Date: 20230102
  Transmission Date: 20230417
  Serious: No
  Sender: FDA-Public Use
  Company Number: None

PATIENT
  Age: 71 Year
  Sex: Female

DRUGS (1)
  1. ADEMPAS [Suspect]
     Active Substance: RIOCIGUAT
     Indication: Pulmonary arterial hypertension
     Dosage: FREQUENCY : 3 TIMES A DAY;?
     Route: 048
     Dates: start: 20190110

REACTIONS (5)
  - Dyspnoea [None]
  - Fatigue [None]
  - Dyspnoea exertional [None]
  - Peripheral swelling [None]
  - Cardiac failure [None]

NARRATIVE: CASE EVENT DATE: 20221215
